FAERS Safety Report 25747558 (Version 1)
Quarter: 2025Q3

REPORT INFORMATION
  Report Type: Spontaneous
  Country: CN (occurrence: CN)
  Receive Date: 20250901
  Receipt Date: 20250901
  Transmission Date: 20251021
  Serious: Yes (Other)
  Sender: AMGEN
  Company Number: CN-AMGEN-CHNSP2025168666

PATIENT
  Age: 50 Year
  Sex: Female

DRUGS (18)
  1. XGEVA [Suspect]
     Active Substance: DENOSUMAB
     Indication: Hormone receptor positive HER2 negative breast cancer
     Route: 065
     Dates: start: 202303, end: 202402
  2. XGEVA [Suspect]
     Active Substance: DENOSUMAB
     Indication: Metastases to bone
  3. XGEVA [Suspect]
     Active Substance: DENOSUMAB
     Indication: Metastases to spine
  4. PACLITAXEL [Concomitant]
     Active Substance: PACLITAXEL
     Indication: Hormone receptor positive HER2 negative breast cancer
     Route: 065
     Dates: start: 202302, end: 202312
  5. PACLITAXEL [Concomitant]
     Active Substance: PACLITAXEL
     Indication: Metastases to spine
     Route: 065
     Dates: start: 202312, end: 202402
  6. PACLITAXEL [Concomitant]
     Active Substance: PACLITAXEL
     Indication: Metastases to bone
  7. LEUPROLIDE ACETATE [Concomitant]
     Active Substance: LEUPROLIDE ACETATE
     Indication: Hormone receptor positive HER2 negative breast cancer
     Route: 058
     Dates: start: 202302, end: 202312
  8. LEUPROLIDE ACETATE [Concomitant]
     Active Substance: LEUPROLIDE ACETATE
     Indication: Metastases to spine
  9. LEUPROLIDE ACETATE [Concomitant]
     Active Substance: LEUPROLIDE ACETATE
     Indication: Metastases to bone
  10. CYCLOPHOSPHAMIDE [Concomitant]
     Active Substance: CYCLOPHOSPHAMIDE
     Indication: Hormone receptor positive HER2 negative breast cancer
     Route: 065
     Dates: start: 202312, end: 202402
  11. CYCLOPHOSPHAMIDE [Concomitant]
     Active Substance: CYCLOPHOSPHAMIDE
     Indication: Metastases to spine
  12. CYCLOPHOSPHAMIDE [Concomitant]
     Active Substance: CYCLOPHOSPHAMIDE
     Indication: Metastases to bone
  13. FULVESTRANT [Concomitant]
     Active Substance: FULVESTRANT
     Indication: Hormone receptor positive HER2 negative breast cancer
     Route: 065
     Dates: start: 202312, end: 202402
  14. FULVESTRANT [Concomitant]
     Active Substance: FULVESTRANT
     Indication: Metastases to spine
  15. FULVESTRANT [Concomitant]
     Active Substance: FULVESTRANT
     Indication: Metastases to bone
  16. DALPICICLIB [Concomitant]
     Active Substance: DALPICICLIB
     Indication: Hormone receptor positive HER2 negative breast cancer
     Route: 065
     Dates: start: 202312, end: 202402
  17. DALPICICLIB [Concomitant]
     Active Substance: DALPICICLIB
     Indication: Metastases to spine
  18. DALPICICLIB [Concomitant]
     Active Substance: DALPICICLIB
     Indication: Metastases to bone

REACTIONS (1)
  - Triple negative breast cancer [Unknown]

NARRATIVE: CASE EVENT DATE: 20240201
